FAERS Safety Report 6016035-1 (Version None)
Quarter: 2008Q4

REPORT INFORMATION
  Report Type: 
  Country: None (occurrence: None)
  Receive Date: 20081222
  Receipt Date: 20081215
  Transmission Date: 20090506
  Serious: Yes (Other)
  Sender: FDA-Public Use
  Company Number: GB-ABBOTT-08P-167-0493019-00

PATIENT
  Sex: Male

DRUGS (4)
  1. VALPROATE SODIUM [Suspect]
     Indication: PARTIAL SEIZURES
     Route: 048
     Dates: start: 20081001, end: 20081001
  2. EPILIM [Concomitant]
     Indication: PARTIAL SEIZURES
     Route: 048
     Dates: end: 20081001
  3. EPILIM [Concomitant]
     Route: 048
     Dates: start: 20081001
  4. CARBAMAZEPINE [Concomitant]
     Indication: CONVULSION
     Route: 048
     Dates: start: 20070101

REACTIONS (4)
  - ABNORMAL BEHAVIOUR [None]
  - IMPULSIVE BEHAVIOUR [None]
  - IRRITABILITY [None]
  - PSYCHOTIC DISORDER [None]
